FAERS Safety Report 19977878 (Version 1)
Quarter: 2021Q4

REPORT INFORMATION
  Report Type: Spontaneous
  Country: CN (occurrence: CN)
  Receive Date: 20211020
  Receipt Date: 20211020
  Transmission Date: 20220304
  Serious: Yes (Other)
  Sender: FDA-Public Use
  Company Number: 2021A771810

PATIENT
  Age: 1931 Week
  Sex: Male
  Weight: 70 kg

DRUGS (3)
  1. DAPAGLIFLOZIN [Suspect]
     Active Substance: DAPAGLIFLOZIN
     Indication: Diabetes mellitus
     Dosage: 10 MG, QD
     Route: 048
     Dates: start: 20200501, end: 20211005
  2. LINAGLIPTIN [Concomitant]
     Active Substance: LINAGLIPTIN
     Indication: Diabetes mellitus
     Route: 065
  3. METFORMIN HYDROCHLORIDE [Concomitant]
     Active Substance: METFORMIN HYDROCHLORIDE
     Indication: Diabetes mellitus
     Route: 065

REACTIONS (3)
  - Ketoacidosis [Recovered/Resolved]
  - Pulmonary mass [Unknown]
  - Pleural thickening [Unknown]

NARRATIVE: CASE EVENT DATE: 20211005
